FAERS Safety Report 5772335-1 (Version None)
Quarter: 2008Q2

REPORT INFORMATION
  Report Type: 
  Country: None (occurrence: None)
  Receive Date: 20080613
  Receipt Date: 20080604
  Transmission Date: 20081010
  Serious: Yes (Death)
  Sender: FDA-Public Use
  Company Number: US-ROCHE-564419

PATIENT
  Sex: Male
  Weight: 93 kg

DRUGS (10)
  1. CAPECITABINE [Suspect]
     Dosage: 3150 MG IN AM, 3000 MG IN PM X7D 150MG EXP.DATE:31/5/09; 500MG; EXP.DATE:30/11/08
     Route: 065
     Dates: start: 20080508, end: 20080511
  2. PHY906 [Suspect]
     Dosage: TAKEN ON D1-4 EVERY 14 DAYS
     Route: 048
     Dates: start: 20080508, end: 20080511
  3. ULTRAM ER [Concomitant]
  4. PROTONIX [Concomitant]
     Route: 048
  5. XANAX [Concomitant]
     Dosage: QHS PRN1; FOR ONE YEAR +
  6. CREON [Concomitant]
     Dosage: CREON 10 WITH MEALS
  7. LYRICA [Concomitant]
     Route: 048
  8. M.V.I. [Concomitant]
  9. VITAMIN B6 [Concomitant]
     Dates: start: 20080501
  10. PENICILLIN [Concomitant]
     Indication: LAXATIVE SUPPORTIVE CARE
     Dates: end: 20080504

REACTIONS (1)
  - MYOCARDIAL INFARCTION [None]
